FAERS Safety Report 6242767-6 (Version None)
Quarter: 2009Q2

REPORT INFORMATION
  Report Type: 
  Country: None (occurrence: None)
  Receive Date: 20090624
  Receipt Date: 20090616
  Transmission Date: 20091009
  Serious: Yes (Other)
  Sender: FDA-Public Use
  Company Number: US-PFIZER INC-2009228864

PATIENT
  Sex: Male
  Weight: 87.996 kg

DRUGS (15)
  1. SUTENT [Suspect]
     Indication: GASTRIC CANCER
     Dates: end: 20090201
  2. NEXIUM [Concomitant]
     Dosage: UNK
  3. SORAFENIB [Concomitant]
     Dosage: UNK
  4. LISINOPRIL [Concomitant]
     Dosage: UNK
  5. PROMETHAZINE [Concomitant]
     Dosage: UNK
  6. ACTOS [Concomitant]
     Dosage: UNK
  7. ACETYLSALICYLIC ACID [Concomitant]
     Dosage: UNK
  8. DESOXIMETASONE [Concomitant]
     Dosage: UNK
  9. DIABETA [Concomitant]
     Dosage: UNK
  10. FERROUS GLUCONATE [Concomitant]
     Dosage: UNK
  11. GLUCOPHAGE [Concomitant]
     Dosage: UNK
  12. LESCOL [Concomitant]
     Dosage: UNK
  13. LEVOTHROID [Concomitant]
     Dosage: UNK
  14. TRICOR [Concomitant]
     Dosage: UNK
  15. VITAMIN B-12 [Concomitant]
     Dosage: UNK

REACTIONS (1)
  - DYSPLASTIC NAEVUS SYNDROME [None]
